FAERS Safety Report 10143783 (Version 2)
Quarter: 2014Q2

REPORT INFORMATION
  Report Type: Spontaneous
  Country: US (occurrence: US)
  Receive Date: 20140430
  Receipt Date: 20140527
  Transmission Date: 20141212
  Serious: Yes (Death)
  Sender: FDA-Public Use
  Company Number: US-GLAXOSMITHKLINE-A1062112A

PATIENT
  Age: 84 Year
  Sex: Female

DRUGS (16)
  1. VOTRIENT [Suspect]
     Indication: RENAL CANCER
     Dosage: 800MG PER DAY
     Route: 048
     Dates: start: 20140122, end: 20140220
  2. WARFARIN [Concomitant]
  3. VITAMIN D [Concomitant]
  4. PROBIOTIC [Concomitant]
  5. MULTIVITAMIN [Concomitant]
  6. METOPROLOL [Concomitant]
  7. MAGNESIUM [Concomitant]
  8. LEVOTHYROXINE [Concomitant]
  9. LANTUS [Concomitant]
  10. JANUVIA [Concomitant]
  11. DIOVAN [Concomitant]
  12. DILTIAZEM [Concomitant]
  13. ISOSORBIDE [Concomitant]
  14. GEMFIBROZIL [Concomitant]
  15. INSULIN [Concomitant]
  16. ALENDRONATE [Concomitant]

REACTIONS (6)
  - Death [Fatal]
  - Peripheral swelling [Unknown]
  - Pain in extremity [Unknown]
  - Pain in extremity [Unknown]
  - Oral mucosal blistering [Unknown]
  - Peripheral swelling [Unknown]
